FAERS Safety Report 25670389 (Version 5)
Quarter: 2025Q4

REPORT INFORMATION
  Report Type: Report from Study
  Country: EU (occurrence: EU)
  Receive Date: 20250812
  Receipt Date: 20251121
  Transmission Date: 20260118
  Serious: Yes (Death, Life-Threatening, Hospitalization, Other)
  Sender: ITALFARMACO SPA
  Company Number: EU-ITALFARMACO SPA-2182326

PATIENT
  Age: 6 Year
  Sex: Male
  Weight: 18.9 kg

DRUGS (2)
  1. DUVYZAT [Suspect]
     Active Substance: GIVINOSTAT
     Indication: Duchenne muscular dystrophy
     Dates: start: 20250325, end: 20250623
  2. AGAMREE [Suspect]
     Active Substance: VAMOROLONE
     Dates: start: 20240807, end: 20250623

REACTIONS (21)
  - Cardiac arrest [Fatal]
  - Sudden death [Fatal]
  - Myocardial infarction [Fatal]
  - Rash [Recovered/Resolved]
  - Erythema [Recovered/Resolved]
  - Tympanic membrane hyperaemia [Recovered/Resolved]
  - Lymphadenopathy [Recovered/Resolved]
  - Tachycardia [Recovered/Resolved]
  - Body temperature increased [Unknown]
  - Bradycardia [Unknown]
  - Pallor [Unknown]
  - Tympanic membrane hyperaemia [Unknown]
  - Lymphadenopathy [Unknown]
  - Erythema [Unknown]
  - Rash [Unknown]
  - Abdominal pain upper [Recovered/Resolved]
  - Panic attack [Unknown]
  - Gastroenteritis [Unknown]
  - Platelet count decreased [Unknown]
  - Pyrexia [Recovered/Resolved]
  - Thrombocytopenia [Fatal]

NARRATIVE: CASE EVENT DATE: 20250512
